FAERS Safety Report 6305819-8 (Version None)
Quarter: 2009Q3

REPORT INFORMATION
  Report Type: 
  Country: None (occurrence: None)
  Receive Date: 20090812
  Receipt Date: 20090803
  Transmission Date: 20100115
  Serious: Yes (Hospitalization, Other)
  Sender: FDA-Public Use
  Company Number: GB-RANBAXY-2009RR-25575

PATIENT
  Age: 72 Year
  Sex: Female

DRUGS (10)
  1. FLUOXETINE [Suspect]
  2. WARFARIN SODIUM [Suspect]
     Indication: PROPHYLAXIS
     Dosage: UNK
     Dates: end: 20030901
  3. ZOTON [Suspect]
  4. CODEINE [Concomitant]
  5. LEVOTHYROXINE SODIUM [Concomitant]
     Indication: HYPOTHYROIDISM
     Dosage: 100 UG, QD
  6. LOPERAMINE [Concomitant]
  7. TEMAZEPAM [Concomitant]
  8. TINZAPARIN [Concomitant]
     Route: 058
  9. URSODIOL [Concomitant]
     Indication: PRURITUS
     Dosage: 300 MG, BID
  10. PHENINDIONE [Concomitant]

REACTIONS (11)
  - CONDITION AGGRAVATED [None]
  - FEEDING DISORDER [None]
  - GENERAL PHYSICAL HEALTH DETERIORATION [None]
  - HEPATITIS CHOLESTATIC [None]
  - HEPATOTOXICITY [None]
  - HYPOREFLEXIA [None]
  - HYPOTHYROIDISM [None]
  - INTESTINAL ISCHAEMIA [None]
  - JAUNDICE CHOLESTATIC [None]
  - MESENTERIC ARTERY THROMBOSIS [None]
  - SEPSIS [None]
